FAERS Safety Report 13120104 (Version 1)
Quarter: 2017Q1

REPORT INFORMATION
  Report Type: Spontaneous
  Country: US (occurrence: US)
  Receive Date: 20170117
  Receipt Date: 20170117
  Transmission Date: 20170428
  Serious: Yes (Death)
  Sender: FDA-Public Use
  Company Number: US-TAIHO ONCOLOGY INC-EU-2017-00043

PATIENT
  Age: 73 Year
  Sex: Female

DRUGS (8)
  1. LONSURF [Suspect]
     Active Substance: TIPIRACIL HYDROCHLORIDE\TRIFLURIDINE
     Indication: COLON CANCER
     Route: 048
     Dates: start: 20161216
  2. ULORIC [Concomitant]
     Active Substance: FEBUXOSTAT
     Dosage: NI
  3. LACTULOSE. [Concomitant]
     Active Substance: LACTULOSE
     Dosage: NI
  4. AMIODARONE HYDROCHLORIDE. [Concomitant]
     Active Substance: AMIODARONE HYDROCHLORIDE
     Dosage: NI
  5. COMBIVENT RESPIMAT [Concomitant]
     Active Substance: ALBUTEROL SULFATE\IPRATROPIUM BROMIDE
     Dosage: NI
  6. MAGNESIUM [Concomitant]
     Active Substance: MAGNESIUM
     Dosage: NI
  7. SIMETHICONE (DIMETHICONE) [Concomitant]
     Active Substance: DIMETHICONE
     Dosage: NI
  8. ZOLPIDEM TARTRATE. [Concomitant]
     Active Substance: ZOLPIDEM TARTRATE
     Dosage: NI

REACTIONS (1)
  - Death [Fatal]

NARRATIVE: CASE EVENT DATE: 201612
